FAERS Safety Report 7950735-9 (Version None)
Quarter: 2011Q4

REPORT INFORMATION
  Report Type: 
  Country: None (occurrence: None)
  Receive Date: 20111123
  Receipt Date: 20111108
  Transmission Date: 20120403
  Serious: Yes (Life-Threatening, Hospitalization, Disabling)
  Sender: FDA-Public Use
  Company Number: 2009AL004919

PATIENT
  Age: 56 Year
  Sex: Male
  Weight: 127.0072 kg

DRUGS (63)
  1. LISINOPRIL [Concomitant]
  2. LYRICA [Concomitant]
  3. METOLAZINE [Concomitant]
  4. PLAVIX [Concomitant]
  5. ATROPINE [Concomitant]
  6. LOVAZA [Concomitant]
  7. PULMICORT [Concomitant]
  8. CLAFORAN [Concomitant]
  9. DOPAMINE HCL [Concomitant]
  10. VECURONIUM BROMIDE [Concomitant]
  11. DIGOXIN [Suspect]
     Indication: CARDIOMYOPATHY
     Dosage: 0.25 MG;QD;PO
     Route: 048
     Dates: start: 20060314, end: 20090915
  12. POTASSIUM ACETATE [Concomitant]
  13. PROTONIX [Concomitant]
  14. ALPRAZOLAM [Concomitant]
  15. LANTUS [Concomitant]
  16. LISINOPRIL [Concomitant]
  17. DUONEB [Concomitant]
  18. PNEUMOCOCCAL VACCINE [Concomitant]
  19. LEVAQUIN [Concomitant]
  20. ATIVAN [Concomitant]
  21. SPIRIVA [Concomitant]
  22. METRONIDAZOLE [Concomitant]
  23. BUSPIRONE [Concomitant]
  24. NITROGLYCERIN [Concomitant]
  25. DECADRON [Concomitant]
  26. IV FLUIDS [Concomitant]
  27. ADVAIR DISKUS 100/50 [Concomitant]
  28. GABAPENTIN [Concomitant]
  29. AVELOX [Concomitant]
  30. VANCOCIN HYDROCHLORIDE [Concomitant]
  31. OXYGEN [Concomitant]
  32. XANAX [Concomitant]
  33. CLINDAMYCIN [Concomitant]
  34. EPINEPHRINE [Concomitant]
  35. CORTISONE ACETATE [Concomitant]
  36. TEMAZEPAM [Concomitant]
  37. FUROSEMIDE [Concomitant]
  38. ASPIRIN [Concomitant]
  39. MULTI-VITAMIN [Concomitant]
  40. POTASSIUM CHLORIDE [Concomitant]
  41. MUCOMYST [Concomitant]
  42. DEPO-MEDROL [Concomitant]
  43. ANTIBIOTICS [Concomitant]
  44. HYDROCODONE [Concomitant]
  45. ALBUTEROL [Concomitant]
  46. IBUPROFEN [Concomitant]
  47. MONOKET [Concomitant]
  48. NADOLOL [Concomitant]
  49. ALDACTONE [Concomitant]
  50. ZETIA [Concomitant]
  51. BUSPAR [Concomitant]
  52. ACTOS [Concomitant]
  53. GLYBURIDE [Concomitant]
  54. FLU SHOT [Concomitant]
  55. ASCORBIC ACID [Concomitant]
  56. LASIX [Concomitant]
  57. PREDNISONE TAB [Concomitant]
  58. CIPROFLOXACIN [Concomitant]
  59. SPIRONOLACTONE [Concomitant]
  60. GLUCOVANCE [Concomitant]
  61. KEFLEX [Concomitant]
  62. SOLU-CORTEF [Concomitant]
  63. CYMBALTA [Concomitant]

REACTIONS (50)
  - MULTIPLE INJURIES [None]
  - ANGINA PECTORIS [None]
  - SICK SINUS SYNDROME [None]
  - CARDIOGENIC SHOCK [None]
  - DIARRHOEA [None]
  - MALAISE [None]
  - RESPIRATORY ARREST [None]
  - CELLULITIS [None]
  - CARDIO-RESPIRATORY ARREST [None]
  - DIARRHOEA HAEMORRHAGIC [None]
  - ECONOMIC PROBLEM [None]
  - TACHYCARDIA [None]
  - CARDIAC ARREST [None]
  - BRONCHITIS [None]
  - MYOCARDIAL INFARCTION [None]
  - RESPIRATORY DISTRESS [None]
  - PNEUMONIA [None]
  - PLEURITIC PAIN [None]
  - LIMB INJURY [None]
  - FAMILY STRESS [None]
  - CARDIOMYOPATHY [None]
  - PULMONARY HYPERTENSION [None]
  - CARDIAC FAILURE CONGESTIVE [None]
  - CHEST DISCOMFORT [None]
  - NEUROPATHY PERIPHERAL [None]
  - DEVICE MALFUNCTION [None]
  - DYSPNOEA [None]
  - TREATMENT NONCOMPLIANCE [None]
  - DEPRESSION [None]
  - STARING [None]
  - ANXIETY [None]
  - BRADYCARDIA [None]
  - HAEMATOCHEZIA [None]
  - BLOOD GLUCOSE INCREASED [None]
  - CORONARY ARTERY OCCLUSION [None]
  - ATELECTASIS [None]
  - PLEURAL EFFUSION [None]
  - ARTERIOSCLEROSIS [None]
  - PLEURISY [None]
  - ACUTE MYOCARDIAL INFARCTION [None]
  - ISCHAEMIC CARDIOMYOPATHY [None]
  - DIABETES MELLITUS INADEQUATE CONTROL [None]
  - HYPOTENSION [None]
  - CHRONIC OBSTRUCTIVE PULMONARY DISEASE [None]
  - HYPOKINESIA [None]
  - OEDEMA PERIPHERAL [None]
  - THROMBOPHLEBITIS [None]
  - DEEP VEIN THROMBOSIS [None]
  - TRANSIENT ISCHAEMIC ATTACK [None]
  - SLEEP APNOEA SYNDROME [None]
